FAERS Safety Report 21993909 (Version 1)
Quarter: 2023Q1

REPORT INFORMATION
  Report Type: Spontaneous
  Country: FR (occurrence: FR)
  Receive Date: 20230215
  Receipt Date: 20230215
  Transmission Date: 20230417
  Serious: Yes (Life-Threatening, Other)
  Sender: FDA-Public Use
  Company Number: FR-AMGEN-FRASP2023021480

PATIENT

DRUGS (7)
  1. FILGRASTIM [Suspect]
     Active Substance: FILGRASTIM
     Indication: Prophylaxis
     Dosage: UNK
     Route: 065
  2. DOXORUBICIN [Concomitant]
     Active Substance: DOXORUBICIN
     Indication: Hodgkin^s disease
     Dosage: 25 MILLIGRAM/SQ. METER
  3. BRENTUXIMAB VEDOTIN [Concomitant]
     Active Substance: BRENTUXIMAB VEDOTIN
     Indication: Hodgkin^s disease
     Dosage: UNK(BUT NO } 120 MG),
  4. VINBLASTINE [Concomitant]
     Active Substance: VINBLASTINE
     Indication: Hodgkin^s disease
     Dosage: 6 MILLIGRAM/SQ. METER
  5. DACARBAZINE [Concomitant]
     Active Substance: DACARBAZINE
     Indication: Hodgkin^s disease
     Dosage: 375 MILLIGRAM/SQ. METER(ONCE PER DAY ON DAYS I AND 15.)
  6. BLEOMYCIN [Concomitant]
     Active Substance: BLEOMYCIN SULFATE
     Indication: Hodgkin^s disease
     Dosage: 10 MILLIGRAM/SQ. METER
  7. VINCRISTINE [Concomitant]
     Active Substance: VINCRISTINE
     Indication: Hodgkin^s disease

REACTIONS (15)
  - Febrile neutropenia [Unknown]
  - Neuropathy peripheral [Unknown]
  - Neutropenia [Unknown]
  - Leukopenia [Unknown]
  - Infection [Unknown]
  - Gastrointestinal disorder [Unknown]
  - Skin disorder [Unknown]
  - Alanine aminotransferase increased [Unknown]
  - Hodgkin^s disease [Unknown]
  - Deep vein thrombosis [Unknown]
  - Renal cell carcinoma [Unknown]
  - Basal cell carcinoma [Unknown]
  - Aspartate aminotransferase increased [Unknown]
  - Amnesia [Unknown]
  - Weight decreased [Unknown]
